FAERS Safety Report 14995733 (Version 1)
Quarter: 2018Q2

REPORT INFORMATION
  Report Type: Spontaneous
  Country: US (occurrence: US)
  Receive Date: 20180611
  Receipt Date: 20180611
  Transmission Date: 20180711
  Serious: No
  Sender: FDA-Public Use
  Company Number: US-HORIZON-PEN-0406-2018

PATIENT
  Sex: Female

DRUGS (9)
  1. PENNSAID [Suspect]
     Active Substance: DICLOFENAC SODIUM
     Indication: ARTHRALGIA
     Dosage: BID
  2. CHLORZOXAZONE. [Concomitant]
     Active Substance: CHLORZOXAZONE
  3. DULOXETINE. [Concomitant]
     Active Substance: DULOXETINE
  4. TRAMADOL. [Concomitant]
     Active Substance: TRAMADOL
  5. METHIMAZOLE. [Concomitant]
     Active Substance: METHIMAZOLE
  6. PANTOPRAZOLE [Concomitant]
     Active Substance: PANTOPRAZOLE
  7. BENICAR [Concomitant]
     Active Substance: OLMESARTAN MEDOXOMIL
  8. AMLODIPINE [Concomitant]
     Active Substance: AMLODIPINE BESYLATE
  9. CARVEDILOL. [Concomitant]
     Active Substance: CARVEDILOL

REACTIONS (1)
  - Drug ineffective [Unknown]
